FAERS Safety Report 9471438 (Version 1)
Quarter: 2013Q3

REPORT INFORMATION
  Report Type: Spontaneous
  Country: BR (occurrence: BR)
  Receive Date: 20130822
  Receipt Date: 20130822
  Transmission Date: 20140515
  Serious: Yes (Hospitalization, Other)
  Sender: FDA-Public Use
  Company Number: BR-ASTRAZENECA-2013SE63090

PATIENT
  Sex: Male

DRUGS (7)
  1. ATENOLOL [Suspect]
     Indication: ARRHYTHMIA
     Route: 048
     Dates: start: 2011
  2. BRILINTA [Suspect]
     Route: 048
     Dates: start: 201212, end: 2013
  3. ROSUCOR [Suspect]
     Indication: BLOOD CHOLESTEROL INCREASED
     Route: 065
  4. LYRICA [Suspect]
     Route: 065
     Dates: start: 201302, end: 201304
  5. CLOPIN [Concomitant]
  6. GLICEFOR [Concomitant]
     Indication: DIABETES MELLITUS
  7. MONOCORDIL [Concomitant]
     Dates: start: 2012

REACTIONS (5)
  - Venous occlusion [Recovered/Resolved]
  - Arrhythmia [Recovered/Resolved]
  - Haematoma [Unknown]
  - Diverticulitis [Unknown]
  - Intervertebral disc protrusion [Unknown]
